FAERS Safety Report 13876999 (Version 6)
Quarter: 2018Q4

REPORT INFORMATION
  Report Type: Spontaneous
  Country: DE (occurrence: DE)
  Receive Date: 20170817
  Receipt Date: 20181002
  Transmission Date: 20190204
  Serious: Yes (Death, Other)
  Sender: FDA-Public Use
  Company Number: DE-009507513-1708DEU005900

PATIENT
  Sex: Male

DRUGS (16)
  1. POSACONAZOLE [Suspect]
     Active Substance: POSACONAZOLE
     Indication: ANTIFUNGAL PROPHYLAXIS
     Dosage: 600 MG EVERY DAY
     Route: 048
     Dates: start: 201405
  2. CASPOFUNGIN ACETATE. [Suspect]
     Active Substance: CASPOFUNGIN ACETATE
     Indication: ANTIFUNGAL TREATMENT
     Dosage: 200 MG EVERYDAY
     Route: 042
     Dates: start: 201409
  3. AMPHOTERICIN B. [Suspect]
     Active Substance: AMPHOTERICIN B
     Indication: ASPERGILLUS INFECTION
  4. CYTARABINE. [Concomitant]
     Active Substance: CYTARABINE
     Dosage: 2000 MG/M2/DAY B.I.D., DAYS 1 AND 5
     Route: 042
     Dates: start: 201408
  5. ETOPOSIDE. [Concomitant]
     Active Substance: ETOPOSIDE
     Indication: ACUTE MYELOID LEUKAEMIA
     Dosage: 100 MG/M2/DAY, DAYS 3 TO 7
     Route: 042
     Dates: start: 201405
  6. AMPHOTERICIN B. [Suspect]
     Active Substance: AMPHOTERICIN B
     Indication: ANTIFUNGAL TREATMENT
     Dosage: 3 MG/KG/DAY SINCE DAY -6
     Route: 042
     Dates: start: 201409, end: 201409
  7. CASPOFUNGIN ACETATE. [Suspect]
     Active Substance: CASPOFUNGIN ACETATE
     Dosage: 70 MG, QD (LOADING DOSE)
     Route: 042
     Dates: start: 201409, end: 201409
  8. VORICONAZOLE. [Suspect]
     Active Substance: VORICONAZOLE
     Indication: ASPERGILLUS INFECTION
     Dosage: 6 MG/KG/DAY, BID, LOADING DOSE, 12MG/KG EVERY DAY
     Route: 042
     Dates: start: 201409, end: 201409
  9. VORICONAZOLE. [Suspect]
     Active Substance: VORICONAZOLE
     Indication: ANTIFUNGAL TREATMENT
     Dosage: 8 MG/KG/DAY, EVERY DAY
     Route: 042
     Dates: start: 201409, end: 201409
  10. CYTARABINE. [Concomitant]
     Active Substance: CYTARABINE
     Indication: ACUTE MYELOID LEUKAEMIA
     Dosage: 100 MG/M2/DAY, DAYS 1 TO 7
     Route: 042
     Dates: start: 201405
  11. IDARUBICIN HYDROCHLORIDE. [Concomitant]
     Active Substance: IDARUBICIN HYDROCHLORIDE
     Indication: ACUTE MYELOID LEUKAEMIA
     Dosage: 12 MG/M2/DAY, DAYS 2, 4 AND 6
     Route: 042
     Dates: start: 201405
  12. MELPHALAN. [Concomitant]
     Active Substance: MELPHALAN
     Indication: BONE MARROW CONDITIONING REGIMEN
     Dosage: 150 MG/M2, ON DAY -2
     Route: 042
     Dates: start: 201409
  13. DECITABINE. [Concomitant]
     Active Substance: DECITABINE
     Indication: ACUTE MYELOID LEUKAEMIA
     Dosage: 20 MG/M2/DAY, DAYS 1 TO 5
     Route: 042
     Dates: start: 2014
  14. FLUDARABINE PHOSPHATE. [Concomitant]
     Active Substance: FLUDARABINE PHOSPHATE
     Indication: BONE MARROW CONDITIONING REGIMEN
     Dosage: 30 MG/M2/DAY, DAYS -6 TO -2;
     Dates: start: 201409
  15. MITOXANTRONE HYDROCHLORIDE. [Concomitant]
     Active Substance: MITOXANTRONE HYDROCHLORIDE
     Indication: ACUTE MYELOID LEUKAEMIA
     Dosage: 30 MG/M2/DAY, DAYS 1 AND 5
     Route: 042
     Dates: start: 201408
  16. ANTILYMPHOCYTE IMMUNOGLOBULIN [Concomitant]
     Active Substance: THYMOCYTE IMMUNE GLOBULIN NOS
     Indication: BONE MARROW CONDITIONING REGIMEN
     Dosage: 10 MG/KG/DAY, DAYS -5 TO -2
     Route: 042
     Dates: start: 201409

REACTIONS (5)
  - Aspergillus infection [Fatal]
  - Drug ineffective [Fatal]
  - Drug resistance [Unknown]
  - Bronchopulmonary aspergillosis [Fatal]
  - Cerebral aspergillosis [Fatal]

NARRATIVE: CASE EVENT DATE: 201408
